FAERS Safety Report 7529152 (Version 3)
Quarter: 2012Q4

REPORT INFORMATION
  Report Type: 
  Country: JP (occurrence: US)
  Receive Date: 20100805
  Receipt Date: 20121109
  Transmission Date: 20130627
  Serious: Yes (Hospitalization, Other)
  Sender: FDA-Public Use
  Company Number: US-JNJFOC-20100708434

PATIENT
  Age: 67 None
  Sex: Female

DRUGS (3)
  1. LEVAQUIN [Suspect]
     Indication: INFECTION
     Route: 048
     Dates: start: 200109
  2. CORTISONE [Suspect]
     Indication: PAIN IN EXTREMITY
     Route: 050
  3. TEQUIN [Suspect]
     Indication: EYE INFECTION

REACTIONS (6)
  - Eye injury [Unknown]
  - Tendonitis [Recovering/Resolving]
  - Exostosis [Unknown]
  - Pain in extremity [Unknown]
  - Macular scar [Unknown]
  - Deep vein thrombosis [Not Recovered/Not Resolved]
